FAERS Safety Report 4986103-1 (Version None)
Quarter: 2006Q2

REPORT INFORMATION
  Report Type: 
  Country: None (occurrence: None)
  Receive Date: 20060428
  Receipt Date: 20060420
  Transmission Date: 20061013
  Serious: Yes (Death, Hospitalization)
  Sender: FDA-Public Use
  Company Number: JP-SANOFI-SYNTHELABO-A01200603251

PATIENT
  Sex: Male

DRUGS (3)
  1. OXALIPLATIN [Suspect]
     Indication: LARGE INTESTINE CARCINOMA
     Dosage: 135 MG/BODY
     Route: 042
     Dates: start: 20051221, end: 20051221
  2. FLUOROURACIL [Suspect]
     Indication: LARGE INTESTINE CARCINOMA
     Dosage: 4000 MG/BODY
     Route: 042
     Dates: start: 20051221, end: 20051222
  3. ISOVORIN [Suspect]
     Indication: LARGE INTESTINE CARCINOMA
     Dosage: UNK UNK
     Route: 042

REACTIONS (7)
  - ASCITES [None]
  - BILIARY FISTULA [None]
  - CATHETER RELATED INFECTION [None]
  - HEPATIC FAILURE [None]
  - HEPATIC FIBROSIS [None]
  - INTERSTITIAL LUNG DISEASE [None]
  - VOMITING [None]
